FAERS Safety Report 5209597-5 (Version None)
Quarter: 2007Q1

REPORT INFORMATION
  Report Type: 
  Country: None (occurrence: None)
  Receive Date: 20070116
  Receipt Date: 20070108
  Transmission Date: 20070707
  Serious: No
  Sender: FDA-Public Use
  Company Number: JP-PFIZER INC-2006156208

PATIENT
  Sex: Female

DRUGS (2)
  1. TRIAZOLAM [Suspect]
     Dosage: DAILY DOSE:.25MG
     Route: 048
  2. SILECE [Concomitant]
     Route: 048

REACTIONS (2)
  - DIARRHOEA [None]
  - STRESS [None]
